FAERS Safety Report 4933202-6 (Version None)
Quarter: 2006Q1

REPORT INFORMATION
  Report Type: 
  Country: None (occurrence: None)
  Receive Date: 20060306
  Receipt Date: 20050421
  Transmission Date: 20060701
  Serious: Yes (Hospitalization, Disabling)
  Sender: FDA-Public Use
  Company Number: US-MERCK-0504USA04271

PATIENT
  Age: 49 Year
  Sex: Male
  Weight: 89 kg

DRUGS (4)
  1. VIOXX [Suspect]
     Indication: OSTEOARTHRITIS
     Route: 048
     Dates: start: 19990809, end: 20041101
  2. VIOXX [Suspect]
     Route: 048
     Dates: start: 19990809, end: 20041101
  3. VIOXX [Suspect]
     Indication: EXOSTOSIS
     Route: 048
     Dates: start: 19990809, end: 20041101
  4. VIOXX [Suspect]
     Route: 048
     Dates: start: 19990809, end: 20041101

REACTIONS (15)
  - ARTERIOSCLEROSIS CORONARY ARTERY [None]
  - BLOOD PRESSURE INCREASED [None]
  - BREAST MASS [None]
  - BRONCHITIS ACUTE [None]
  - CORONARY ARTERY OCCLUSION [None]
  - DRUG INTOLERANCE [None]
  - EPICONDYLITIS [None]
  - HYPERLIPIDAEMIA [None]
  - LABYRINTHITIS [None]
  - LOW DENSITY LIPOPROTEIN INCREASED [None]
  - MICROALBUMINURIA [None]
  - MYOCARDIAL INFARCTION [None]
  - OTITIS MEDIA [None]
  - PHARYNGITIS [None]
  - TENDONITIS [None]
